FAERS Safety Report 25436123 (Version 2)
Quarter: 2025Q3

REPORT INFORMATION
  Report Type: Spontaneous
  Country: PH (occurrence: PH)
  Receive Date: 20250614
  Receipt Date: 20250714
  Transmission Date: 20251020
  Serious: Yes (Death, Hospitalization, Other)
  Sender: ASTELLAS
  Company Number: PH-ASTELLAS-2025-AER-028130

PATIENT
  Sex: Male

DRUGS (1)
  1. XTANDI [Suspect]
     Active Substance: ENZALUTAMIDE
     Indication: Product used for unknown indication
     Route: 065

REACTIONS (3)
  - Death [Fatal]
  - Pneumonia [Unknown]
  - Bacteraemia [Unknown]

NARRATIVE: CASE EVENT DATE: 20250710
